FAERS Safety Report 10542923 (Version 1)
Quarter: 2014Q4

REPORT INFORMATION
  Report Type: Spontaneous
  Country: US (occurrence: None)
  Receive Date: 20141024
  Receipt Date: 20141024
  Transmission Date: 20150529
  Serious: No
  Sender: FDA-Public Use
  Company Number: None

PATIENT
  Age: 55 Year
  Sex: Male
  Weight: 70.31 kg

DRUGS (1)
  1. OSMOPREP [Suspect]
     Active Substance: SODIUM PHOSPHATE, DIBASIC, ANHYDROUS\SODIUM PHOSPHATE, MONOBASIC, MONOHYDRATE
     Indication: COLONOSCOPY
     Dosage: EVERY 15M FOR 1HR
     Route: 048
     Dates: start: 20141019, end: 20141019

REACTIONS (6)
  - Feeling hot [None]
  - Erythema [None]
  - Tremor [None]
  - Paraesthesia [None]
  - Hypersensitivity [None]
  - Chills [None]

NARRATIVE: CASE EVENT DATE: 20141019
